FAERS Safety Report 6183964-8 (Version None)
Quarter: 2009Q2

REPORT INFORMATION
  Report Type: 
  Country: None (occurrence: None)
  Receive Date: 20090508
  Receipt Date: 20090430
  Transmission Date: 20091009
  Serious: Yes (Hospitalization, Other)
  Sender: FDA-Public Use
  Company Number: US-ROXANE LABORATORIES, INC.-2009-RO-00428RO

PATIENT
  Age: 30 Year
  Sex: Female

DRUGS (18)
  1. FLUCONAZOLE [Suspect]
     Indication: ORAL CANDIDIASIS
  2. FLUCONAZOLE [Suspect]
  3. ATRIPLA [Concomitant]
  4. SOLU-MEDROL [Concomitant]
     Indication: RASH
  5. AMPHOTERICIN B [Concomitant]
     Indication: CANDIDIASIS
  6. LINEZOLID [Concomitant]
     Indication: SEPSIS
  7. LEVAQUIN [Concomitant]
     Indication: SEPSIS
  8. BENADRYL [Concomitant]
     Indication: GENERAL SYMPTOM
  9. TYLENOL [Concomitant]
     Indication: GENERAL SYMPTOM
  10. TRIAMCINOLONE [Concomitant]
     Indication: DERMATITIS BULLOUS
     Route: 061
  11. VANCOMYCIN HCL [Concomitant]
     Indication: EVIDENCE BASED TREATMENT
  12. PIPERACILLIN SODIUM AND TAZOBACTAM SODIUM [Concomitant]
     Indication: EVIDENCE BASED TREATMENT
  13. AZITHROMYCIN [Concomitant]
     Indication: OPPORTUNISTIC INFECTION PROPHYLAXIS
  14. DOXYCYCLINE [Concomitant]
     Indication: MYCOPLASMA INFECTION
  15. EFAVIRENZ [Concomitant]
     Indication: HIV INFECTION
  16. EMTRICITABINE [Concomitant]
     Indication: HIV INFECTION
  17. TENOFOVIR [Concomitant]
     Indication: HIV INFECTION
  18. NYSTATIN [Concomitant]
     Indication: CANDIDIASIS

REACTIONS (6)
  - DERMATITIS BULLOUS [None]
  - EPIDERMAL NECROSIS [None]
  - HYPOTENSION [None]
  - PYREXIA [None]
  - RASH ERYTHEMATOUS [None]
  - TACHYCARDIA [None]
